FAERS Safety Report 20700176 (Version 1)
Quarter: 2022Q2

REPORT INFORMATION
  Report Type: Spontaneous
  Country: US (occurrence: None)
  Receive Date: 20220411
  Receipt Date: 20220411
  Transmission Date: 20220721
  Serious: No
  Sender: FDA-Public Use
  Company Number: None

PATIENT
  Age: 86 Year
  Sex: Male
  Weight: 85.73 kg

DRUGS (17)
  1. ABIRATERONE ACETATE [Suspect]
     Active Substance: ABIRATERONE ACETATE
     Indication: Prostate cancer
     Dosage: FREQUENCY : DAILY;?
     Route: 048
  2. PREDNISONE [Concomitant]
     Active Substance: PREDNISONE
  3. LUPRON [Concomitant]
     Active Substance: LEUPROLIDE ACETATE
  4. ADVANCE JOINT RELIEF [Concomitant]
  5. DAILY PROBIOTIC [Concomitant]
  6. ONE DAILY MULTIVITAMIN/RO [Concomitant]
  7. KPVITAMIN D3 [Concomitant]
  8. MINERALS\VITAMINS [Concomitant]
     Active Substance: MINERALS\VITAMINS
  9. COENZYME Q10 [Concomitant]
     Active Substance: DIETARY SUPPLEMENT\UBIDECARENONE
  10. FISH OIL\OMEGA-3 FATTY ACIDS [Concomitant]
     Active Substance: FISH OIL\OMEGA-3 FATTY ACIDS
  11. SIMVASTATIN [Concomitant]
     Active Substance: SIMVASTATIN
  12. XARELTO [Concomitant]
     Active Substance: RIVAROXABAN
  13. LISINOPRIL [Concomitant]
     Active Substance: LISINOPRIL
  14. ZETIA [Concomitant]
     Active Substance: EZETIMIBE
  15. CARAFATE [Concomitant]
     Active Substance: SUCRALFATE
  16. IRON [Concomitant]
     Active Substance: IRON
  17. PANTOPRAZOLE SODIUM [Concomitant]
     Active Substance: PANTOPRAZOLE SODIUM

REACTIONS (3)
  - Haemoglobin decreased [None]
  - Gastric ulcer [None]
  - Full blood count decreased [None]
